FAERS Safety Report 25498678 (Version 2)
Quarter: 2025Q3

REPORT INFORMATION
  Report Type: Spontaneous
  Country: US (occurrence: US)
  Receive Date: 20250701
  Receipt Date: 20250808
  Transmission Date: 20251020
  Serious: No
  Sender: Kenvue
  Company Number: US-KENVUE-20250605077

PATIENT
  Sex: Female

DRUGS (1)
  1. WOMENS ROGAINE UNSCENTED [Suspect]
     Active Substance: MINOXIDIL
     Indication: Product used for unknown indication
     Dosage: 1 CAPFUL, ONCE A DAY AT NIGHT
     Route: 061
     Dates: start: 2016

REACTIONS (6)
  - Alopecia [Not Recovered/Not Resolved]
  - Overdose [Unknown]
  - Product container issue [Unknown]
  - Product formulation issue [Unknown]
  - Product use in unapproved indication [Unknown]
  - Poor quality product administered [Unknown]

NARRATIVE: CASE EVENT DATE: 20160101
